FAERS Safety Report 16723386 (Version 1)
Quarter: 2019Q3

REPORT INFORMATION
  Report Type: Spontaneous
  Country: US (occurrence: US)
  Receive Date: 20190703
  Receipt Date: 20190703
  Transmission Date: 20191005
  Serious: No
  Sender: FDA-Public Use
  Company Number: None

PATIENT
  Age: 59 Year
  Sex: Female

DRUGS (1)
  1. GLATIRAMER 40MG PFS INJ (12/BOX) [Suspect]
     Active Substance: GLATIRAMER
     Route: 058
     Dates: start: 20170531

REACTIONS (9)
  - Muscle spasms [None]
  - Hypotension [None]
  - Therapy cessation [None]
  - Dyspnoea [None]
  - Vasodilatation [None]
  - Hyperhidrosis [None]
  - Erythema [None]
  - Cold sweat [None]
  - Heart rate increased [None]

NARRATIVE: CASE EVENT DATE: 20180703
